FAERS Safety Report 15452872 (Version 1)
Quarter: 2018Q4

REPORT INFORMATION
  Report Type: Spontaneous
  Country: IT (occurrence: IT)
  Receive Date: 20181001
  Receipt Date: 20181001
  Transmission Date: 20190204
  Serious: Yes (Other)
  Sender: FDA-Public Use
  Company Number: IT-PFIZER INC-2018387942

PATIENT
  Age: 55 Year
  Sex: Male

DRUGS (6)
  1. PREGABALIN. [Suspect]
     Active Substance: PREGABALIN
     Dosage: UNK UNK, SINGLE
     Route: 048
     Dates: start: 20180903, end: 20180903
  2. TOPIRAMATE. [Suspect]
     Active Substance: TOPIRAMATE
     Dosage: UNK UNK, SINGLE
     Route: 048
     Dates: start: 20180903, end: 20180903
  3. QUETIAPINE. [Suspect]
     Active Substance: QUETIAPINE
     Dosage: UNK, SINGLE
     Route: 048
     Dates: start: 20180903, end: 20180903
  4. INVEGA [Suspect]
     Active Substance: PALIPERIDONE
     Dosage: UNK UNK, SINGLE (DOSAGE FORM: OROS (ORAL OSMOTIC) THERAPEUTIC SYSTEM TABLET)
     Route: 048
     Dates: start: 20180903, end: 20180903
  5. TRAZODONE [Suspect]
     Active Substance: TRAZODONE HYDROCHLORIDE
     Dosage: UNK, SINGLE
     Route: 048
     Dates: start: 20180903, end: 20180903
  6. FLURAZEPAM [Suspect]
     Active Substance: FLURAZEPAM\FLURAZEPAM HYDROCHLORIDE
     Dosage: UNK, SINGLE
     Route: 048
     Dates: start: 20180903, end: 20180903

REACTIONS (6)
  - Hypertonia [Unknown]
  - Intentional product misuse [Unknown]
  - Tachycardia [Unknown]
  - Confusional state [Unknown]
  - Intentional self-injury [Unknown]
  - Myoclonus [Unknown]

NARRATIVE: CASE EVENT DATE: 20180903
